FAERS Safety Report 9560580 (Version 3)
Quarter: 2013Q4

REPORT INFORMATION
  Report Type: Spontaneous
  Country: US (occurrence: US)
  Receive Date: 20130927
  Receipt Date: 20131202
  Transmission Date: 20140711
  Serious: No
  Sender: FDA-Public Use
  Company Number: US-BIOGENIDEC-2013BI052430

PATIENT
  Age: 55 Year
  Sex: Female

DRUGS (12)
  1. TECFIDERA [Suspect]
     Indication: RELAPSING-REMITTING MULTIPLE SCLEROSIS
     Route: 048
     Dates: start: 20130523
  2. TECFIDERA [Suspect]
     Indication: RELAPSING-REMITTING MULTIPLE SCLEROSIS
     Route: 048
     Dates: start: 201306, end: 201306
  3. TECFIDERA [Suspect]
     Indication: RELAPSING-REMITTING MULTIPLE SCLEROSIS
     Route: 048
     Dates: start: 201306
  4. VITAMIN D [Concomitant]
  5. AMPYRA [Concomitant]
  6. AMANTADINE HCI [Concomitant]
  7. DOXYLAMINE SUCCINATE [Concomitant]
  8. BUPROPION HCL ER [Concomitant]
  9. DIAZEPAM [Concomitant]
  10. ALLEGRA [Concomitant]
  11. FLONASE [Concomitant]
  12. GLUCOSAMINE [Concomitant]

REACTIONS (8)
  - Ocular hyperaemia [Not Recovered/Not Resolved]
  - Joint swelling [Not Recovered/Not Resolved]
  - Rhinitis [Unknown]
  - Local swelling [Unknown]
  - Underdose [Unknown]
  - Flushing [Not Recovered/Not Resolved]
  - Erythema [Unknown]
  - Pruritus [Not Recovered/Not Resolved]
